FAERS Safety Report 6974927-0 (Version None)
Quarter: 2010Q3

REPORT INFORMATION
  Report Type: 
  Country: None (occurrence: None)
  Receive Date: 20100909
  Receipt Date: 20090408
  Transmission Date: 20110219
  Serious: No
  Sender: FDA-Public Use
  Company Number: US-WYE-H07398108

PATIENT
  Sex: Female
  Weight: 102.15 kg

DRUGS (4)
  1. PRISTIQ [Suspect]
     Indication: ANXIETY
     Dosage: STARTED ON 50 MG AND THEN TITRATED UP TO 200 MG
     Route: 048
     Dates: start: 20090114, end: 20090301
  2. PRISTIQ [Suspect]
     Indication: DEPRESSION
  3. CELEXA [Concomitant]
  4. PREVACID [Concomitant]

REACTIONS (7)
  - APATHY [None]
  - ASTHENIA [None]
  - CONSTIPATION [None]
  - DEPRESSED MOOD [None]
  - DRUG INEFFECTIVE [None]
  - INTENTIONAL DRUG MISUSE [None]
  - SOMNOLENCE [None]
